FAERS Safety Report 10007070 (Version 2)
Quarter: 2014Q1

REPORT INFORMATION
  Report Type: Spontaneous
  Country: US (occurrence: US)
  Receive Date: 20140313
  Receipt Date: 20140313
  Transmission Date: 20141002
  Serious: No
  Sender: FDA-Public Use
  Company Number: US-GILEAD-2012-0066066

PATIENT
  Sex: Female

DRUGS (2)
  1. LETAIRIS [Suspect]
     Indication: PRODUCT USED FOR UNKNOWN INDICATION
     Dosage: 10 MG, UNK
     Route: 048
     Dates: start: 20120927
  2. LETAIRIS [Suspect]
     Dosage: 5 MG, UNK

REACTIONS (5)
  - Muscular weakness [Unknown]
  - Dyspnoea [Unknown]
  - Headache [Unknown]
  - Hot flush [Unknown]
  - Flushing [Unknown]
